FAERS Safety Report 8413357-1 (Version None)
Quarter: 2012Q2

REPORT INFORMATION
  Report Type: 
  Country: None (occurrence: None)
  Receive Date: 20120605
  Receipt Date: 20120530
  Transmission Date: 20120825
  Serious: Yes (Other)
  Sender: FDA-Public Use
  Company Number: US-PFIZER INC-2012092889

PATIENT
  Sex: Male
  Weight: 122 kg

DRUGS (8)
  1. BACTRIM [Concomitant]
     Indication: HEPATIC CIRRHOSIS
  2. NIFEDIPINE [Concomitant]
     Indication: HYPERTENSION
     Dosage: UNK
  3. PROGRAF [Suspect]
     Indication: HEPATIC CIRRHOSIS
     Dosage: ONE TABLET OF 1MG ONCE A DAY AND TWO TABLETS 1MG ONCE A DAY EVERY ALTERNATE DAY
     Route: 048
  4. LEVOTHYROXINE [Concomitant]
     Indication: THYROID DISORDER
     Dosage: 50 UG, UNK
  5. BACTRIM [Concomitant]
     Indication: LIVER TRANSPLANT
     Dosage: 400/80 MG, UNK
     Dates: start: 20090101
  6. LYRICA [Suspect]
     Indication: NEUROPATHY PERIPHERAL
     Dosage: 100 MG, 1X/DAY
     Route: 048
     Dates: start: 20070101
  7. PROGRAF [Suspect]
     Indication: LIVER TRANSPLANT
     Dosage: 6 MG, 2X/DAY
     Route: 048
     Dates: start: 20090101
  8. LYRICA [Suspect]
     Indication: SCIATIC NERVE NEUROPATHY
     Dosage: 50 MG, 1X/DAY
     Route: 048
     Dates: start: 20070101, end: 20070101

REACTIONS (1)
  - BLOOD GLUCOSE INCREASED [None]
